FAERS Safety Report 6474193-9 (Version None)
Quarter: 2009Q4

REPORT INFORMATION
  Report Type: 
  Country: None (occurrence: None)
  Receive Date: 20091204
  Receipt Date: 20091126
  Transmission Date: 20100525
  Serious: Yes (Other)
  Sender: FDA-Public Use
  Company Number: GB-PFIZER INC-2009303252

PATIENT
  Sex: Female

DRUGS (1)
  1. NEURONTIN [Suspect]
     Indication: NEURALGIA
     Dosage: 300MG IN MORNING AND 600MG AT NIGHT

REACTIONS (3)
  - DYSPHAGIA [None]
  - LARYNGEAL CANCER [None]
  - METASTASIS [None]
